FAERS Safety Report 9708843 (Version 1)
Quarter: 2013Q4

REPORT INFORMATION
  Report Type: Report from Study
  Country: US (occurrence: US)
  Receive Date: 20131125
  Receipt Date: 20131125
  Transmission Date: 20140711
  Serious: Yes (Hospitalization)
  Sender: FDA-Public Use
  Company Number: US-ABBVIE-13P-163-1170081-00

PATIENT
  Age: 67 Year
  Sex: Female
  Weight: 122.58 kg

DRUGS (13)
  1. HUMIRA [Suspect]
     Indication: RHEUMATOID ARTHRITIS
     Dates: start: 2011
  2. HUMIRA [Suspect]
  3. METHOTREXATE [Concomitant]
     Indication: RHEUMATOID ARTHRITIS
  4. PRILOSEC [Concomitant]
     Indication: ABDOMINAL PAIN UPPER
  5. FUROSEMIDE [Concomitant]
     Indication: FLUID RETENTION
  6. OXYCODONE [Concomitant]
     Indication: PAIN
  7. SENNA [Concomitant]
     Indication: CONSTIPATION
  8. TUMS [Concomitant]
     Indication: GASTRIC DISORDER
  9. NYAMYC [Concomitant]
     Indication: ERYTHEMA
  10. HYDROCORTISONE [Concomitant]
     Indication: PRODUCT USED FOR UNKNOWN INDICATION
  11. DOXYCYCLINE [Concomitant]
     Indication: PRODUCT USED FOR UNKNOWN INDICATION
  12. CENTRUM SILVER [Concomitant]
     Indication: VITAMIN SUPPLEMENTATION
  13. POTASSIUM [Concomitant]
     Indication: MINERAL SUPPLEMENTATION

REACTIONS (8)
  - Red blood cell count decreased [Recovered/Resolved]
  - Tremor [Not Recovered/Not Resolved]
  - Dyspnoea [Not Recovered/Not Resolved]
  - White blood cell count decreased [Recovered/Resolved]
  - Platelet count decreased [Recovered/Resolved]
  - Back pain [Not Recovered/Not Resolved]
  - Immunosuppression [Recovering/Resolving]
  - Asthenia [Not Recovered/Not Resolved]
